FAERS Safety Report 9883632 (Version 1)
Quarter: 2014Q1

REPORT INFORMATION
  Report Type: Report from Study
  Country: PE (occurrence: PE)
  Receive Date: 20140210
  Receipt Date: 20140210
  Transmission Date: 20141002
  Serious: Yes (Hospitalization, Other)
  Sender: FDA-Public Use
  Company Number: PE-ASTRAZENECA-2014SE06479

PATIENT
  Sex: Female

DRUGS (1)
  1. BETALOC ZOK [Suspect]
     Route: 048
     Dates: start: 20120505

REACTIONS (2)
  - Intracranial aneurysm [Unknown]
  - Fall [Unknown]
